FAERS Safety Report 5978133-8 (Version None)
Quarter: 2008Q4

REPORT INFORMATION
  Report Type: 
  Country: None (occurrence: None)
  Receive Date: 20081126
  Receipt Date: 20081117
  Transmission Date: 20090506
  Serious: Yes (Hospitalization)
  Sender: FDA-Public Use
  Company Number: 232775J08USA

PATIENT
  Age: 34 Year
  Sex: Female
  Weight: 64 kg

DRUGS (7)
  1. REBIF [Suspect]
     Indication: MULTIPLE SCLEROSIS
     Dosage: 44 MCG, 3 IN 1 WEEKS, SUBCUTANEOUS
     Route: 058
     Dates: start: 20080214
  2. DARVOCET [Suspect]
  3. ALPRAZOLAM [Concomitant]
  4. AMBIEN CR [Concomitant]
  5. IBUPROFEN [Concomitant]
  6. TYLENOL (COTYLENOL) [Concomitant]
  7. ZANAFLEX [Concomitant]

REACTIONS (4)
  - INTRACARDIAC THROMBUS [None]
  - MYOCARDIAL INFARCTION [None]
  - OVARIAN CYST [None]
  - PANIC ATTACK [None]
